FAERS Safety Report 9220603 (Version 2)
Quarter: 2013Q2

REPORT INFORMATION
  Report Type: Spontaneous
  Country: BE (occurrence: BE)
  Receive Date: 20130409
  Receipt Date: 20130429
  Transmission Date: 20140414
  Serious: Yes (Hospitalization, Other)
  Sender: FDA-Public Use
  Company Number: BE-JNJFOC-20130301502

PATIENT
  Age: 62 Year
  Sex: Female

DRUGS (11)
  1. XARELTO [Suspect]
     Indication: ATRIAL FIBRILLATION
     Route: 048
     Dates: start: 201212, end: 20130224
  2. XARELTO [Suspect]
     Indication: CEREBROVASCULAR ACCIDENT PROPHYLAXIS
     Route: 048
     Dates: start: 201212, end: 20130224
  3. PROCORALAN [Concomitant]
     Route: 065
  4. BISOPROLOL [Concomitant]
     Route: 065
  5. MEDROL [Concomitant]
     Indication: CHRONIC OBSTRUCTIVE PULMONARY DISEASE
     Route: 065
  6. SIFROL [Concomitant]
     Route: 065
  7. SINTROM [Concomitant]
     Route: 065
  8. AVELOX [Concomitant]
     Indication: CHRONIC OBSTRUCTIVE PULMONARY DISEASE
     Route: 065
  9. ALDACTAZINE [Concomitant]
     Dosage: 1/2 TBALET ONCE DAILY
     Route: 065
  10. LYRICA [Concomitant]
     Route: 065
  11. SIFROL [Concomitant]
     Route: 065

REACTIONS (4)
  - Pulmonary haemorrhage [Recovered/Resolved]
  - Laryngeal haematoma [Recovered/Resolved]
  - Cardiac ablation [Unknown]
  - Atrial flutter [Unknown]
